FAERS Safety Report 5611647-9 (Version None)
Quarter: 2008Q1

REPORT INFORMATION
  Report Type: 
  Country: None (occurrence: None)
  Receive Date: 20080201
  Receipt Date: 20080125
  Transmission Date: 20080703
  Serious: Yes (Other)
  Sender: FDA-Public Use
  Company Number: US-PFIZER INC-2008008580

PATIENT
  Sex: Male
  Weight: 70.909 kg

DRUGS (3)
  1. DETROL LA [Suspect]
     Dosage: DAILY DOSE:4MG
  2. DECLOMYCIN [Concomitant]
  3. DONNATAL [Concomitant]

REACTIONS (11)
  - DRY MOUTH [None]
  - DRY THROAT [None]
  - GASTRIC DISORDER [None]
  - HEADACHE [None]
  - HYPERTONIC BLADDER [None]
  - MALAISE [None]
  - MICTURITION URGENCY [None]
  - NEPHROLITHIASIS [None]
  - NOCTURIA [None]
  - POLLAKIURIA [None]
  - UNEVALUABLE EVENT [None]
